FAERS Safety Report 10855012 (Version 1)
Quarter: 2015Q1

REPORT INFORMATION
  Report Type: Spontaneous
  Country: US (occurrence: None)
  Receive Date: 20150218
  Receipt Date: 20150218
  Transmission Date: 20150721
  Serious: Yes (Disabling)
  Sender: FDA-Public Use
  Company Number: None

PATIENT
  Age: 50 Year
  Sex: Female
  Weight: 60.78 kg

DRUGS (1)
  1. MAGNEVIST [Suspect]
     Active Substance: GADOPENTETATE DIMEGLUMINE
     Indication: SCAN WITH CONTRAST
     Dosage: INTO A VEIN
     Dates: start: 20140728, end: 20140728

REACTIONS (3)
  - Contrast media reaction [None]
  - Product packaging issue [None]
  - Prescribed overdose [None]

NARRATIVE: CASE EVENT DATE: 20140728
